FAERS Safety Report 8214153-0 (Version None)
Quarter: 2012Q1

REPORT INFORMATION
  Report Type: 
  Country: None (occurrence: None)
  Receive Date: 20120315
  Receipt Date: 20120315
  Transmission Date: 20120608
  Serious: Yes (Other)
  Sender: FDA-Public Use
  Company Number: None

PATIENT
  Age: 48 Year
  Sex: Female
  Weight: 58 kg

DRUGS (2)
  1. MASIMO SENSOR [Concomitant]
  2. METHYLENE BLUE 10 MG/ML AMERICAN REGEANT [Suspect]
     Indication: SCAN WITH CONTRAST
     Dosage: 400MG ONCE INTRAVENOUS
     Route: 042
     Dates: start: 20110715

REACTIONS (2)
  - THERMAL BURN [None]
  - ESCHAR [None]
